FAERS Safety Report 9229047 (Version 1)
Quarter: 2013Q2

REPORT INFORMATION
  Report Type: Spontaneous
  Country: SE (occurrence: SE)
  Receive Date: 20130412
  Receipt Date: 20130412
  Transmission Date: 20140414
  Serious: Yes (Other)
  Sender: FDA-Public Use
  Company Number: CHPA2013SE006218

PATIENT
  Sex: Male

DRUGS (1)
  1. SCOPODERM TTS [Suspect]
     Dosage: UNK, UNK
     Route: 061
     Dates: start: 201107

REACTIONS (5)
  - Obsessive thoughts [Unknown]
  - Fatigue [Unknown]
  - Depersonalisation [Unknown]
  - Nausea [Unknown]
  - Vision blurred [Unknown]
